FAERS Safety Report 11852219 (Version 1)
Quarter: 2015Q4

REPORT INFORMATION
  Report Type: Spontaneous
  Country: CA (occurrence: CA)
  Receive Date: 20151218
  Receipt Date: 20151218
  Transmission Date: 20160305
  Serious: Yes (Other)
  Sender: FDA-Public Use
  Company Number: CA-LPDUSPRD-20150997

PATIENT
  Age: 36 Year
  Sex: Female

DRUGS (4)
  1. DIPHENHYDRAMINE. [Concomitant]
     Active Substance: DIPHENHYDRAMINE
     Dosage: DOSE NOT PROVIDED
     Route: 065
     Dates: start: 20151203, end: 20151203
  2. HYDROCORTISONE. [Concomitant]
     Active Substance: HYDROCORTISONE
     Dosage: DOSE NOT PROVIDED
     Route: 065
     Dates: start: 20151203, end: 20151203
  3. VENOFER [Suspect]
     Active Substance: IRON SUCROSE
     Dosage: 500 MG / 250 CC NACL
     Route: 042
     Dates: start: 20151203, end: 20151203
  4. ACETAMINOPHEN. [Concomitant]
     Active Substance: ACETAMINOPHEN
     Dosage: DOSE NOT PROVIDED
     Route: 065
     Dates: start: 20151203, end: 20151203

REACTIONS (4)
  - Injection site rash [Unknown]
  - Joint swelling [Unknown]
  - Rash [Unknown]
  - Urticaria [Unknown]

NARRATIVE: CASE EVENT DATE: 20151203
